FAERS Safety Report 6168301-7 (Version None)
Quarter: 2009Q2

REPORT INFORMATION
  Report Type: 
  Country: None (occurrence: None)
  Receive Date: 20090423
  Receipt Date: 20090415
  Transmission Date: 20091009
  Serious: Yes (Other)
  Sender: FDA-Public Use
  Company Number: GXKR2009GB04669

PATIENT
  Age: 36 Year
  Sex: Female
  Weight: 52 kg

DRUGS (3)
  1. SERTRALINE [Suspect]
     Indication: BIPOLAR DISORDER
     Dosage: 150 MG
  2. SERTRALINE [Suspect]
     Indication: DEPRESSION
     Dosage: 150 MG
  3. ABILIFY [Suspect]
     Indication: BIPOLAR DISORDER
     Dosage: 150MG, QD

REACTIONS (2)
  - ABORTION INDUCED [None]
  - DRUG EXPOSURE DURING PREGNANCY [None]
